FAERS Safety Report 7879891-8 (Version None)
Quarter: 2011Q4

REPORT INFORMATION
  Report Type: 
  Country: None (occurrence: None)
  Receive Date: 20111101
  Receipt Date: 20111013
  Transmission Date: 20120403
  Serious: Yes (Hospitalization, Other)
  Sender: FDA-Public Use
  Company Number: FR-MERCK-1101FRA00131

PATIENT
  Age: 58 Year
  Sex: Male
  Weight: 71 kg

DRUGS (8)
  1. INSULIN GLARGINE [Concomitant]
     Route: 058
     Dates: start: 20101202, end: 20101220
  2. REPAGLINIDE [Concomitant]
     Route: 048
     Dates: end: 20101220
  3. METFORMIN HYDROCHLORIDE AND PIOGLITAZONE HYDROCHLORIDE [Concomitant]
     Indication: TYPE 2 DIABETES MELLITUS
     Route: 048
     Dates: end: 20101201
  4. INSULIN GLARGINE [Concomitant]
     Indication: TYPE 2 DIABETES MELLITUS
     Route: 058
     Dates: start: 20101221
  5. REPAGLINIDE [Concomitant]
     Route: 048
     Dates: start: 20101221
  6. JANUMET [Suspect]
     Indication: TYPE 2 DIABETES MELLITUS
     Route: 048
     Dates: start: 20101202, end: 20101220
  7. METHYLPREDNISOLONE [Suspect]
     Indication: SCIATICA
     Route: 048
     Dates: start: 20101128, end: 20101201
  8. JANUVIA [Suspect]
     Indication: TYPE 2 DIABETES MELLITUS
     Route: 048
     Dates: start: 20100908, end: 20101201

REACTIONS (3)
  - SCIATICA [None]
  - MALAISE [None]
  - BLOOD GLUCOSE INCREASED [None]
